FAERS Safety Report 8334437-5 (Version None)
Quarter: 2012Q2

REPORT INFORMATION
  Report Type: 
  Country: None (occurrence: None)
  Receive Date: 20120503
  Receipt Date: 20120111
  Transmission Date: 20120825
  Serious: No
  Sender: FDA-Public Use
  Company Number: US-BAUSCH-2012BL000656

PATIENT
  Age: 86 Year
  Sex: Female

DRUGS (3)
  1. LOTEMAX [Suspect]
     Indication: PRODUCT USED FOR UNKNOWN INDICATION
     Route: 047
  2. CODEINE SYRUP [Suspect]
  3. AUGMENTIN '125' [Suspect]

REACTIONS (3)
  - DRUG HYPERSENSITIVITY [None]
  - ABDOMINAL PAIN [None]
  - URTICARIA [None]
